FAERS Safety Report 8540408-6 (Version None)
Quarter: 2012Q3

REPORT INFORMATION
  Report Type: 
  Country: None (occurrence: None)
  Receive Date: 20120726
  Receipt Date: 20110503
  Transmission Date: 20120928
  Serious: No
  Sender: FDA-Public Use
  Company Number: US-ASTRAZENECA-2011SE26810

PATIENT
  Age: 54 Year
  Sex: Female
  Weight: 106.6 kg

DRUGS (13)
  1. TRAZODONE HYDROCHLORIDE [Concomitant]
  2. ZOLOFT [Concomitant]
  3. LOMOTIL [Concomitant]
  4. BUSPIRONE HCL [Concomitant]
  5. ALLEGRA-D 12 HOUR [Concomitant]
  6. LOVASTATIN [Concomitant]
  7. ALPRAZOLAM [Concomitant]
  8. SEROQUEL XR [Suspect]
     Indication: SCHIZOPHRENIA
     Route: 048
     Dates: start: 20090101
  9. PHENERGAN HCL [Concomitant]
  10. LIDODERM [Concomitant]
  11. NEXIUM [Concomitant]
  12. FLEXERIL [Concomitant]
  13. MORPHINE SULFATE [Concomitant]

REACTIONS (8)
  - VISUAL IMPAIRMENT [None]
  - NAUSEA [None]
  - CARPAL TUNNEL SYNDROME [None]
  - MENOPAUSE [None]
  - CONSTIPATION [None]
  - WEIGHT INCREASED [None]
  - DECREASED APPETITE [None]
  - ARTHRITIS [None]
